FAERS Safety Report 19727866 (Version 1)
Quarter: 2021Q3

REPORT INFORMATION
  Report Type: Spontaneous
  Country: US (occurrence: US)
  Receive Date: 20210819
  Receipt Date: 20210819
  Transmission Date: 20211014
  Serious: No
  Sender: FDA-Public Use
  Company Number: None

PATIENT
  Sex: Female

DRUGS (1)
  1. COPAXONE [Suspect]
     Active Substance: GLATIRAMER ACETATE
     Indication: MULTIPLE SCLEROSIS
     Route: 058
     Dates: start: 202102

REACTIONS (8)
  - Drug hypersensitivity [None]
  - Injection site erythema [None]
  - Injection site warmth [None]
  - Heat exhaustion [None]
  - Injection site pruritus [None]
  - Injection site irritation [None]
  - Peripheral swelling [None]
  - Dehydration [None]
